FAERS Safety Report 17143776 (Version 1)
Quarter: 2019Q4

REPORT INFORMATION
  Report Type: Spontaneous
  Country: CA (occurrence: CA)
  Receive Date: 20191211
  Receipt Date: 20191211
  Transmission Date: 20200122
  Serious: Yes (Death, Disabling, Other)
  Sender: FDA-Public Use
  Company Number: CA-AUROBINDO-AUR-APL-2019-104619

PATIENT
  Age: 60 Year
  Sex: Male

DRUGS (7)
  1. BENZTROPINE. [Suspect]
     Active Substance: BENZTROPINE
     Indication: BIPOLAR DISORDER
     Dosage: UNK
     Route: 065
  2. CHLORPROMAZINE. [Suspect]
     Active Substance: CHLORPROMAZINE
     Dosage: 75 MILLIGRAM, 3 TIMES A DAY
     Route: 065
  3. TRIHEXYPHENIDYL [Suspect]
     Active Substance: TRIHEXYPHENIDYL
     Dosage: 2 MILLIGRAM, FOUR TIMES/DAY
     Route: 065
  4. CHLORPROMAZINE. [Suspect]
     Active Substance: CHLORPROMAZINE
     Indication: BIPOLAR DISORDER
     Dosage: 50 MILLIGRAM, 3 TIMES A DAY
     Route: 065
  5. QUETIAPINE FILM-COATED TABLET [Suspect]
     Active Substance: QUETIAPINE
     Indication: PRODUCT USED FOR UNKNOWN INDICATION
     Dosage: UNK
     Route: 065
  6. TRIHEXYPHENIDYL [Suspect]
     Active Substance: TRIHEXYPHENIDYL
     Indication: PARKINSONISM
     Dosage: 2 MILLIGRAM, 3 TIMES A DAY
     Route: 065
  7. LITHIUM CARBONATE. [Suspect]
     Active Substance: LITHIUM CARBONATE
     Indication: BIPOLAR DISORDER
     Dosage: UNK
     Route: 065

REACTIONS (8)
  - Dyskinesia [Fatal]
  - Tardive dyskinesia [Fatal]
  - Dementia Alzheimer^s type [Fatal]
  - Cerebral amyloid angiopathy [Fatal]
  - Hallucination [Fatal]
  - Unmasking of previously unidentified disease [Fatal]
  - Confusional state [Fatal]
  - Parkinsonism [Fatal]
